FAERS Safety Report 12143698 (Version 1)
Quarter: 2016Q1

REPORT INFORMATION
  Report Type: Spontaneous
  Country: US (occurrence: US)
  Receive Date: 20160304
  Receipt Date: 20160304
  Transmission Date: 20160526
  Serious: No
  Sender: FDA-Public Use
  Company Number: US-JNJFOC-20160212870

PATIENT
  Sex: Male
  Weight: 79.38 kg

DRUGS (3)
  1. OTHER THERAPEUTIC PRODUCTS [Concomitant]
     Active Substance: UNSPECIFIED INGREDIENT
     Indication: ATRIAL FIBRILLATION
     Route: 065
  2. MENS ROGAINE EXTRA STRENGTH [Suspect]
     Active Substance: MINOXIDIL
     Indication: ALOPECIA
     Dosage: 1/2 CAPFUL,
     Route: 061
  3. MENS ROGAINE EXTRA STRENGTH [Suspect]
     Active Substance: MINOXIDIL
     Indication: ALOPECIA
     Dosage: 1/2 CAPFUL ONCE DIALY
     Route: 061

REACTIONS (4)
  - Product use issue [Unknown]
  - Off label use [Unknown]
  - Contraindication to medical treatment [Unknown]
  - Drug ineffective for unapproved indication [Unknown]
